FAERS Safety Report 5298770-6 (Version None)
Quarter: 2007Q2

REPORT INFORMATION
  Report Type: 
  Country: None (occurrence: None)
  Receive Date: 20070417
  Receipt Date: 20070406
  Transmission Date: 20071010
  Serious: No
  Sender: FDA-Public Use
  Company Number: JP-BRISTOL-MYERS SQUIBB COMPANY-13740071

PATIENT
  Age: 81 Year
  Sex: Male

DRUGS (7)
  1. GATIFLO TABS 100 MG [Suspect]
     Indication: ASTHMA
     Route: 048
     Dates: start: 20070313, end: 20070320
  2. GATIFLO TABS 100 MG [Suspect]
     Indication: RESPIRATORY TRACT INFECTION
     Route: 048
     Dates: start: 20070313, end: 20070320
  3. UNIPHYL [Concomitant]
     Route: 048
  4. ONON [Concomitant]
     Route: 048
  5. HALCION [Concomitant]
     Route: 048
  6. FLUTICASONE PROPIONATE [Concomitant]
     Route: 055
  7. SEREVENT [Concomitant]
     Route: 055

REACTIONS (1)
  - BLOOD GLUCOSE DECREASED [None]
